FAERS Safety Report 8355996 (Version 2)
Quarter: 2013Q1

REPORT INFORMATION
  Report Type: Spontaneous
  Country: CA (occurrence: CA)
  Receive Date: 20120126
  Receipt Date: 20130329
  Transmission Date: 20140127
  Serious: Yes (Life-Threatening)
  Sender: FDA-Public Use
  Company Number: CA-JNJFOC-20120110431

PATIENT
  Sex: Male
  Weight: 89.81 kg

DRUGS (4)
  1. REMICADE [Suspect]
     Indication: CROHN^S DISEASE
     Dosage: 5MG/KG PATIENT HAD TOTAL NUMBER OF INFUSIONS: 10
     Route: 042
     Dates: start: 20091026, end: 20110314
  2. IMURAN [Suspect]
     Indication: CROHN^S DISEASE
     Dosage: INITIALLY 75 MG
     Route: 065
     Dates: start: 20090326, end: 20110621
  3. ASACOL [Concomitant]
     Indication: CROHN^S DISEASE
     Route: 065
     Dates: start: 20090213
  4. HYDROCORTISONE [Concomitant]
     Indication: CROHN^S DISEASE
     Route: 042
     Dates: start: 20091026

REACTIONS (3)
  - Acute leukaemia [Recovered/Resolved]
  - Arthralgia [Unknown]
  - Myalgia [Unknown]
